FAERS Safety Report 23240952 (Version 1)
Quarter: 2023Q4

REPORT INFORMATION
  Report Type: Spontaneous
  Country: US (occurrence: None)
  Receive Date: 20231128
  Receipt Date: 20231128
  Transmission Date: 20240110
  Serious: Yes (Death)
  Sender: FDA-Public Use
  Company Number: None

PATIENT
  Age: 37 Year
  Sex: Female
  Weight: 76.5 kg

DRUGS (1)
  1. LOPERAMIDE [Suspect]
     Active Substance: LOPERAMIDE
     Indication: Product used for unknown indication
     Dosage: OTHER FREQUENCY : UNKNOWN;?
     Route: 048

REACTIONS (2)
  - Cardiac arrest [None]
  - Cardiotoxicity [None]

NARRATIVE: CASE EVENT DATE: 20231115
